FAERS Safety Report 24937827 (Version 1)
Quarter: 2025Q1

REPORT INFORMATION
  Report Type: Report from Study
  Country: US (occurrence: US)
  Receive Date: 20250206
  Receipt Date: 20250206
  Transmission Date: 20250409
  Serious: Yes (Other)
  Sender: TAKEDA
  Company Number: US-TAKEDA-2024TUS113673

PATIENT
  Age: 35 Year
  Sex: Male

DRUGS (2)
  1. VEDOLIZUMAB [Suspect]
     Active Substance: VEDOLIZUMAB
     Indication: Colitis ulcerative
     Dosage: 108 MILLIGRAM, Q2WEEKS
     Dates: start: 20240124
  2. VEDOLIZUMAB [Suspect]
     Active Substance: VEDOLIZUMAB

REACTIONS (3)
  - Colitis ulcerative [Recovered/Resolved]
  - Drug ineffective [Unknown]
  - Product dose omission issue [Unknown]

NARRATIVE: CASE EVENT DATE: 20241001
